FAERS Safety Report 5326900-6 (Version None)
Quarter: 2007Q2

REPORT INFORMATION
  Report Type: 
  Country: None (occurrence: None)
  Receive Date: 20070511
  Receipt Date: 20070430
  Transmission Date: 20071010
  Serious: Yes (Hospitalization)
  Sender: FDA-Public Use
  Company Number: GXKR2007DE03205

PATIENT
  Age: 62 Year
  Sex: Male

DRUGS (4)
  1. METOPROLOL 1A PHARMA (NGX) (METOPROLOL) TABLET, 100MG [Suspect]
     Indication: HYPERTENSION
     Dosage: 50 MG, QD,ORAL
     Route: 048
  2. BISPHOSPHONATES (BISPHOSPHONATES) [Concomitant]
  3. DOXAZOSIN (DOXAZOSIN) UNKNOWN [Concomitant]
  4. THYRONAJOD (LEVOTHYROXINE SODIUM, POTASSIUM IODIDE) UNKNOWN [Concomitant]

REACTIONS (2)
  - PRURITUS [None]
  - RASH MACULAR [None]
